FAERS Safety Report 21439289 (Version 1)
Quarter: 2022Q4

REPORT INFORMATION
  Report Type: Spontaneous
  Country: US (occurrence: None)
  Receive Date: 20221008
  Receipt Date: 20221008
  Transmission Date: 20230112
  Serious: Yes (Hospitalization)
  Sender: FDA-Public Use
  Company Number: None

PATIENT
  Sex: Male

DRUGS (1)
  1. BETHKIS [Suspect]
     Active Substance: TOBRAMYCIN
     Indication: Sepsis
     Dosage: 300 MG/4ML   INHALATION?INHALE 4 ML VIA NEBULIZER TWICE DAILY FOR 28 DAYS, ALTERNATE MONTHS?
     Route: 055
     Dates: start: 20220802

REACTIONS (1)
  - Pseudomonas infection [None]
